FAERS Safety Report 11771745 (Version 1)
Quarter: 2015Q4

REPORT INFORMATION
  Report Type: Spontaneous
  Country: US (occurrence: None)
  Receive Date: 20151123
  Receipt Date: 20151123
  Transmission Date: 20160304
  Serious: No
  Sender: FDA-Public Use
  Company Number: None

PATIENT
  Age: 52 Year
  Sex: Female
  Weight: 61.69 kg

DRUGS (3)
  1. BENZONATATE 200 MG STRIDES [Suspect]
     Active Substance: BENZONATATE
     Indication: COUGH
     Route: 048
     Dates: start: 20151121, end: 20151121
  2. ARMOUR THYROID [Concomitant]
     Active Substance: THYROID, PORCINE\THYROID, UNSPECIFIED
  3. VIT D. [Concomitant]

REACTIONS (2)
  - Headache [None]
  - No therapeutic response [None]

NARRATIVE: CASE EVENT DATE: 20151121
